FAERS Safety Report 4358558-7 (Version None)
Quarter: 2004Q2

REPORT INFORMATION
  Report Type: 
  Country: None (occurrence: None)
  Receive Date: 20040512
  Receipt Date: 20040430
  Transmission Date: 20050107
  Serious: No
  Sender: FDA-Public Use
  Company Number: 04P-229-0259498-00

PATIENT
  Age: 32 Year
  Sex: Female

DRUGS (2)
  1. VALPROATE SODIUM [Suspect]
     Dosage: 600 MG, 1 IN 1 D, ORAL
     Route: 048
  2. TEMOZOLOMIDE [Suspect]
     Indication: GLIOBLASTOMA
     Dosage: 300 MG, CYCLIC

REACTIONS (2)
  - PAIN [None]
  - THERAPEUTIC RESPONSE INCREASED [None]
